FAERS Safety Report 24435022 (Version 2)
Quarter: 2024Q4

REPORT INFORMATION
  Report Type: Spontaneous
  Country: DE (occurrence: DE)
  Receive Date: 20241014
  Receipt Date: 20241104
  Transmission Date: 20250114
  Serious: Yes (Hospitalization, Other)
  Sender: ORGANON
  Company Number: DE-ORGANON-O2410DEU000026

PATIENT
  Age: 50 Year
  Sex: Female
  Weight: 76 kg

DRUGS (2)
  1. ETONOGESTREL [Suspect]
     Active Substance: ETONOGESTREL
     Indication: Contraception
     Dosage: 1 IMPLANT (LEFT UPPER ARM)
     Route: 058
     Dates: start: 2018
  2. ETONOGESTREL [Suspect]
     Active Substance: ETONOGESTREL
     Indication: Contraception
     Dosage: 1 IMPLANT
     Route: 059
     Dates: start: 20210908, end: 20240911

REACTIONS (11)
  - Surgery [Unknown]
  - General anaesthesia [Unknown]
  - Post procedural haematoma [Unknown]
  - Implant site scar [Unknown]
  - Complication associated with device [Not Recovered/Not Resolved]
  - Device placement issue [Not Recovered/Not Resolved]
  - Complication of device removal [Not Recovered/Not Resolved]
  - Complication of device removal [Not Recovered/Not Resolved]
  - Overdose [Unknown]
  - Incorrect product administration duration [Unknown]
  - Incorrect product administration duration [Unknown]

NARRATIVE: CASE EVENT DATE: 20180101
